FAERS Safety Report 25925148 (Version 1)
Quarter: 2025Q4

REPORT INFORMATION
  Report Type: Spontaneous
  Country: US (occurrence: None)
  Receive Date: 20251013
  Receipt Date: 20251013
  Transmission Date: 20260118
  Serious: Yes (Life-Threatening, Disabling, Other)
  Sender: FDA-CTU
  Company Number: None

PATIENT
  Age: 40 Year
  Sex: Male
  Weight: 96.75 kg

DRUGS (8)
  1. PROZAC [Suspect]
     Active Substance: FLUOXETINE HYDROCHLORIDE
     Indication: Anxiety
     Dosage: OTHER QUANTITY : 1 TABLET(S);?FREQUENCY : AT BEDTIME;?
     Route: 048
     Dates: start: 20161001, end: 20230724
  2. WELLBUTRIN XL [Suspect]
     Active Substance: BUPROPION HYDROCHLORIDE
     Indication: Depression
     Dosage: OTHER QUANTITY : 1 TABLET(S);?
     Route: 048
  3. Cabergoline 0.25 mg every 4 days [Concomitant]
  4. Magnesium supplement Vitamin D3, 4000 IU daily [Concomitant]
  5. FISH OIL [Concomitant]
     Active Substance: FISH OIL
  6. VITAMINS [Concomitant]
     Active Substance: VITAMINS
  7. PROBIOTICS NOS [Concomitant]
     Active Substance: PROBIOTICS NOS
  8. Vitamin C (time-release, low dose) [Concomitant]

REACTIONS (14)
  - Withdrawal syndrome [None]
  - Anhedonia [None]
  - Emotional disorder [None]
  - Anxiety [None]
  - Irritability [None]
  - Cognitive disorder [None]
  - Insomnia [None]
  - Muscle tightness [None]
  - Inflammation [None]
  - Fatigue [None]
  - Autonomic nervous system imbalance [None]
  - Sensory disturbance [None]
  - Weight increased [None]
  - Loss of personal independence in daily activities [None]

NARRATIVE: CASE EVENT DATE: 20240908
